FAERS Safety Report 8818212 (Version 1)
Quarter: 2012Q4

REPORT INFORMATION
  Report Type: 
  Country: US (occurrence: US)
  Receive Date: 20121001
  Receipt Date: 20121001
  Transmission Date: 20130627
  Serious: Yes (Other)
  Sender: FDA-Public Use
  Company Number: US-PFIZER INC-2012241909

PATIENT
  Age: 75 Year
  Sex: Female
  Weight: 74.38 kg

DRUGS (1)
  1. LYRICA [Suspect]
     Indication: ABDOMINAL PAIN UPPER
     Dosage: 25 mg in morning, 25 mg in afternoon and 50 mg in night
     Route: 048

REACTIONS (2)
  - Weight increased [Unknown]
  - Glucose tolerance impaired [Unknown]
